FAERS Safety Report 9225837 (Version 1)
Quarter: 2013Q2

REPORT INFORMATION
  Report Type: Spontaneous
  Country: US (occurrence: US)
  Receive Date: 20130411
  Receipt Date: 20130411
  Transmission Date: 20140414
  Serious: No
  Sender: FDA-Public Use
  Company Number: US-ASTELLAS-2012US009919

PATIENT
  Age: 57 Year
  Sex: Male
  Weight: 84 kg

DRUGS (2)
  1. PROTOPIC [Suspect]
     Indication: ECZEMA
     Dosage: 0.01 %, UID/QD
     Route: 061
     Dates: start: 20121003, end: 20121003
  2. DOXYCYCLINE [Concomitant]
     Indication: SKIN INFECTION
     Dosage: 100 MG, UNKNOWN/D
     Route: 048

REACTIONS (1)
  - Application site pain [Unknown]
